FAERS Safety Report 21663708 (Version 2)
Quarter: 2022Q4

REPORT INFORMATION
  Report Type: Report from Study
  Country: AU (occurrence: AU)
  Receive Date: 20221130
  Receipt Date: 20221215
  Transmission Date: 20230113
  Serious: Yes (Other)
  Sender: FDA-Public Use
  Company Number: AU-TAKEDA-2021TUS081693

PATIENT
  Age: 76 Year
  Sex: Male

DRUGS (16)
  1. HUMAN IMMUNOGLOBULIN G [Suspect]
     Active Substance: HUMAN IMMUNOGLOBULIN G
     Indication: Hypogammaglobulinaemia
     Dosage: 6 GRAM, 1/WEEK
     Route: 058
     Dates: start: 20211130
  2. HUMAN IMMUNOGLOBULIN G [Suspect]
     Active Substance: HUMAN IMMUNOGLOBULIN G
     Dosage: 6 GRAM, 1/WEEK
     Route: 058
     Dates: start: 20211207
  3. HUMAN IMMUNOGLOBULIN G [Suspect]
     Active Substance: HUMAN IMMUNOGLOBULIN G
     Dosage: 6 GRAM, 1/WEEK
     Route: 058
     Dates: start: 20211207
  4. MIRABEGRON [Concomitant]
     Active Substance: MIRABEGRON
  5. ROSUVASTATIN [Concomitant]
     Active Substance: ROSUVASTATIN
  6. BETAMETHASONE [Concomitant]
     Active Substance: BETAMETHASONE
  7. SODIUM HYALURONATE [Concomitant]
     Active Substance: HYALURONATE SODIUM
  8. EPLERENONE [Concomitant]
     Active Substance: EPLERENONE
  9. EMPAGLIFLOZIN [Concomitant]
     Active Substance: EMPAGLIFLOZIN
  10. AMILORIDE HYDROCHLORIDE [Concomitant]
     Active Substance: AMILORIDE HYDROCHLORIDE
  11. FOLIC ACID [Concomitant]
     Active Substance: FOLIC ACID
  12. METHOTREXATE [Concomitant]
     Active Substance: METHOTREXATE
  13. ACETAMINOPHEN\CODEINE PHOSPHATE [Concomitant]
     Active Substance: ACETAMINOPHEN\CODEINE PHOSPHATE
  14. DENOSUMAB [Concomitant]
     Active Substance: DENOSUMAB
  15. LERCANIDIPINE [Concomitant]
     Active Substance: LERCANIDIPINE
  16. LISINOPRIL [Concomitant]
     Active Substance: LISINOPRIL

REACTIONS (4)
  - Plasma cell myeloma [Unknown]
  - Anxiety [Recovered/Resolved]
  - Nausea [Recovered/Resolved]
  - Vomiting [Recovered/Resolved]

NARRATIVE: CASE EVENT DATE: 20211214
